FAERS Safety Report 24454579 (Version 2)
Quarter: 2024Q4

REPORT INFORMATION
  Report Type: Report from Study
  Country: PH (occurrence: PH)
  Receive Date: 20241017
  Receipt Date: 20241018
  Transmission Date: 20250115
  Serious: No
  Sender: ROCHE
  Company Number: PH-ROCHE-3470237

PATIENT
  Age: 75 Year
  Sex: Male
  Weight: 60.0 kg

DRUGS (1)
  1. MABTHERA [Suspect]
     Active Substance: RITUXIMAB
     Indication: Non-Hodgkin^s lymphoma
     Route: 058

REACTIONS (1)
  - Blood test abnormal [Unknown]
